FAERS Safety Report 15587820 (Version 2)
Quarter: 2018Q4

REPORT INFORMATION
  Report Type: Spontaneous
  Country: FR (occurrence: FR)
  Receive Date: 20181105
  Receipt Date: 20181116
  Transmission Date: 20190205
  Serious: Yes (Death, Hospitalization, Other)
  Sender: FDA-Public Use
  Company Number: FR-009507513-1810FRA013093

PATIENT
  Age: 73 Year
  Sex: Male
  Weight: 78 kg

DRUGS (20)
  1. COZAAR [Concomitant]
     Active Substance: LOSARTAN POTASSIUM
  2. CORDARONE [Concomitant]
     Active Substance: AMIODARONE HYDROCHLORIDE
  3. REBETOL [Suspect]
     Active Substance: RIBAVIRIN
     Indication: HEPATITIS
     Dosage: 200 MILLIGRAM, 6 PER DAY
     Dates: start: 19990623, end: 19991213
  4. REBETOL [Suspect]
     Active Substance: RIBAVIRIN
     Dosage: 200 MILLIGRAM; 5 PER DAY
     Dates: start: 20030122, end: 20040114
  5. VIRAFERONPEG [Suspect]
     Active Substance: PEGINTERFERON ALFA-2B
     Dosage: 120 MICROGRAM; 1 PER WEEK
     Dates: start: 20030122, end: 20040114
  6. LEVOTHYROX [Concomitant]
     Active Substance: LEVOTHYROXINE
  7. LASILIX [Concomitant]
     Active Substance: FUROSEMIDE
  8. ELIQUIS [Concomitant]
     Active Substance: APIXABAN
  9. OLYSIO [Suspect]
     Active Substance: SIMEPREVIR
     Indication: HEPATITIS C
     Dosage: UNK
     Dates: start: 20140902, end: 20141125
  10. DIGOXIN. [Concomitant]
     Active Substance: DIGOXIN
  11. INSPRA [Concomitant]
     Active Substance: EPLERENONE
  12. VIRAFERONPEG [Suspect]
     Active Substance: PEGINTERFERON ALFA-2B
     Indication: HEPATITIS
     Dosage: 3 MU; 3 PER WEEK
     Dates: start: 19990623, end: 19991213
  13. INTRON A [Suspect]
     Active Substance: INTERFERON ALFA-2B
     Indication: HEPATITIS
     Dosage: 3 MILLION INTERNATIONAL UNIT; 3 PER WEEK
     Dates: start: 19940705, end: 19941006
  14. SOVALDI [Suspect]
     Active Substance: SOFOSBUVIR
     Indication: HEPATITIS C
     Dosage: UNK
     Dates: start: 20140902, end: 20141125
  15. KARDEGIC [Concomitant]
     Active Substance: ASPIRIN DL-LYSINE
  16. CARDENSIEL [Concomitant]
     Active Substance: BISOPROLOL FUMARATE
  17. TAHOR [Concomitant]
     Active Substance: ATORVASTATIN CALCIUM
  18. PREVISCAN [Concomitant]
  19. STILNOX [Concomitant]
     Active Substance: ZOLPIDEM TARTRATE
  20. BISOCE [Concomitant]
     Active Substance: BISOPROLOL

REACTIONS (3)
  - Myocardial ischaemia [Fatal]
  - Staphylococcal infection [Recovered/Resolved]
  - Ischaemic cardiomyopathy [Fatal]

NARRATIVE: CASE EVENT DATE: 20140131
